FAERS Safety Report 8494620-5 (Version None)
Quarter: 2012Q3

REPORT INFORMATION
  Report Type: 
  Country: None (occurrence: None)
  Receive Date: 20120709
  Receipt Date: 20120704
  Transmission Date: 20120928
  Serious: Yes (Disabling, Other)
  Sender: FDA-Public Use
  Company Number: CA-B.I. PHARMACEUTICALS,INC./RIDGEFIELD-2012-CN-00222CN

PATIENT
  Age: 74 Year
  Sex: Female
  Weight: 69.9 kg

DRUGS (1)
  1. MICARDIS HCT [Suspect]
     Indication: ADVERSE EVENT
     Route: 048
     Dates: start: 20101123, end: 20110308

REACTIONS (6)
  - HAEMATURIA [None]
  - INCONTINENCE [None]
  - ARTHRALGIA [None]
  - JOINT INSTABILITY [None]
  - RASH [None]
  - FATIGUE [None]
